FAERS Safety Report 7181433-X (Version None)
Quarter: 2010Q4

REPORT INFORMATION
  Report Type: 
  Country: None (occurrence: None)
  Receive Date: 20101221
  Receipt Date: 20100423
  Transmission Date: 20110411
  Serious: No
  Sender: FDA-Public Use
  Company Number: US-AMGEN-KDL408386

PATIENT

DRUGS (2)
  1. ENBREL [Suspect]
     Indication: PSORIATIC ARTHROPATHY
     Dosage: 50 MG, QWK
     Route: 058
     Dates: start: 20000223
  2. METHOTREXATE [Concomitant]
     Dosage: 22.5 MG, QWK
     Route: 048

REACTIONS (3)
  - DRUG INEFFECTIVE [None]
  - MOBILITY DECREASED [None]
  - OEDEMA PERIPHERAL [None]
